FAERS Safety Report 4956224-8 (Version None)
Quarter: 2006Q1

REPORT INFORMATION
  Report Type: 
  Country: None (occurrence: None)
  Receive Date: 20060329
  Receipt Date: 20060324
  Transmission Date: 20060701
  Serious: Yes (Hospitalization)
  Sender: FDA-Public Use
  Company Number: FR-BOEHRINGER INGELHEIM PHARMACEUTICALS, INC.-2006-BP-03379YA

PATIENT
  Age: 94 Year
  Sex: Male

DRUGS (5)
  1. TAMSULOSIN HCL [Suspect]
     Route: 048
  2. NICARDIPINE [Suspect]
     Route: 048
  3. TEMESTA [Suspect]
     Route: 048
  4. LASILIX [Suspect]
     Route: 048
  5. FORLAX [Suspect]
     Route: 048

REACTIONS (2)
  - ANAEMIA [None]
  - THROMBOCYTOPENIC PURPURA [None]
